FAERS Safety Report 9685486 (Version 3)
Quarter: 2014Q1

REPORT INFORMATION
  Report Type: Spontaneous
  Country: US (occurrence: US)
  Receive Date: 20131113
  Receipt Date: 20140108
  Transmission Date: 20141002
  Serious: Yes (Death)
  Sender: FDA-Public Use
  Company Number: US-ASTELLAS-2013US011668

PATIENT
  Sex: Male
  Weight: 68 kg

DRUGS (11)
  1. XTANDI [Suspect]
     Indication: PROSTATE CANCER
     Dosage: 160 MG, UID/QD
     Route: 048
     Dates: start: 20121220
  2. XTANDI [Suspect]
     Dosage: 80 MG, UID/QD
     Route: 048
     Dates: start: 20130316, end: 20131018
  3. COREG [Concomitant]
     Indication: CARDIAC FAILURE CONGESTIVE
     Dosage: 6.25 MG, UID/QD
     Route: 048
  4. DIGOXIN [Concomitant]
     Indication: CARDIAC FAILURE CONGESTIVE
     Dosage: 0.125 MG, QOD
     Route: 048
  5. LASIX                              /00032601/ [Concomitant]
     Indication: CARDIAC FAILURE CONGESTIVE
     Dosage: 20 MG, UID/QD
     Route: 048
  6. COUMADIN                           /00014802/ [Concomitant]
     Indication: CARDIAC FAILURE CONGESTIVE
     Dosage: 3 MG, UID/QD
     Route: 048
  7. ALDACTONE                          /00006201/ [Concomitant]
     Indication: CARDIAC FAILURE CONGESTIVE
     Dosage: 25 MG, UID/QD
     Route: 048
  8. ZOCOR [Concomitant]
     Indication: BLOOD CHOLESTEROL
     Dosage: 40 MG, UID/QD
     Route: 048
  9. PEPCID                             /00706001/ [Concomitant]
     Indication: ACIDOSIS
     Dosage: 20 MG, UID/QD
     Route: 048
     Dates: start: 20130501
  10. MEGACE [Concomitant]
     Indication: APPETITE DISORDER
     Dosage: 20 ML, UID/QD
     Route: 048
  11. TYLENOL                            /00020001/ [Concomitant]
     Indication: PAIN
     Dosage: 1300 - 2600 MG, PRN
     Route: 048

REACTIONS (2)
  - Prostate cancer metastatic [Fatal]
  - Nausea [Unknown]
